FAERS Safety Report 11127277 (Version 1)
Quarter: 2015Q2

REPORT INFORMATION
  Report Type: Spontaneous
  Country: AU (occurrence: AU)
  Receive Date: 20150521
  Receipt Date: 20150521
  Transmission Date: 20150821
  Serious: Yes (Hospitalization, Other)
  Sender: FDA-Public Use
  Company Number: AU-ROCHE-1579671

PATIENT
  Age: 57 Year
  Sex: Male

DRUGS (2)
  1. MABTHERA [Suspect]
     Active Substance: RITUXIMAB
     Indication: CHRONIC LYMPHOCYTIC LEUKAEMIA
     Route: 065
  2. BENDAMUSTINE [Concomitant]
     Active Substance: BENDAMUSTINE
     Route: 065
     Dates: start: 201401

REACTIONS (12)
  - Aura [Recovered/Resolved]
  - Upper respiratory tract infection [Recovered/Resolved]
  - Neutrophil count decreased [Not Recovered/Not Resolved]
  - Sinusitis [Recovered/Resolved]
  - Hypersensitivity [Recovered/Resolved]
  - Migraine [Recovered/Resolved]
  - Nausea [Recovered/Resolved]
  - Eye infection [Recovered/Resolved]
  - Lower respiratory tract infection [Recovered/Resolved with Sequelae]
  - Mouth ulceration [Recovered/Resolved]
  - Skin infection [Recovered/Resolved]
  - Immunodeficiency [Not Recovered/Not Resolved]
